FAERS Safety Report 10444004 (Version 2)
Quarter: 2015Q3

REPORT INFORMATION
  Report Type: Spontaneous
  Country: US (occurrence: US)
  Receive Date: 20140910
  Receipt Date: 20150904
  Transmission Date: 20151125
  Serious: No
  Sender: FDA-Public Use
  Company Number: US-TARO-2014TAR00153

PATIENT
  Age: 69 Year
  Sex: Male
  Weight: 87.75 kg

DRUGS (13)
  1. TIKOSYN [Concomitant]
     Active Substance: DOFETILIDE
     Dosage: 500 ?G, 2X/DAY
  2. FISH OIL [Concomitant]
     Active Substance: FISH OIL
     Dosage: 1000 UNK, 2X/DAY
  3. WARFARIN SODIUM TABLETS USP 5MG [Suspect]
     Active Substance: WARFARIN SODIUM
     Dosage: 2.5 MG, 3X/WEEK
     Route: 048
     Dates: start: 20080319, end: 201405
  4. ATENOLOL. [Concomitant]
     Active Substance: ATENOLOL
     Dosage: 25 MG, 1X/DAY
  5. LISINOPRIL. [Concomitant]
     Active Substance: LISINOPRIL
     Dosage: 20 MG, 1X/DAY
  6. WARFARIN SODIUM TABLETS USP 5MG [Suspect]
     Active Substance: WARFARIN SODIUM
     Dosage: 5 MG, 5X/WEEK
     Route: 048
     Dates: start: 201405, end: 20140713
  7. WARFARIN SODIUM TABLETS USP 5MG [Suspect]
     Active Substance: WARFARIN SODIUM
     Dosage: 5 MG, 1X/DAY
     Route: 048
     Dates: start: 20140714
  8. VITAMIN D [Concomitant]
     Active Substance: CHOLECALCIFEROL
     Dosage: 2000 U, 1X/DAY
  9. ALDACTONE [Concomitant]
     Active Substance: SPIRONOLACTONE
     Dosage: 25 MG, 1X/DAY
  10. WARFARIN SODIUM TABLETS USP 5MG [Suspect]
     Active Substance: WARFARIN SODIUM
     Indication: ATRIAL FIBRILLATION
     Dosage: 5 MG, 4X/WEEK
     Route: 048
     Dates: start: 20080319, end: 201405
  11. LIPITOR [Concomitant]
     Active Substance: ATORVASTATIN CALCIUM
     Dosage: 40 MG, 1X/DAY
  12. WARFARIN SODIUM TABLETS USP 5MG [Suspect]
     Active Substance: WARFARIN SODIUM
     Dosage: 2.5 MG, 2X/WEEK
     Route: 048
     Dates: start: 201405, end: 20140713
  13. PLAVIX [Concomitant]
     Active Substance: CLOPIDOGREL BISULFATE
     Dosage: 75 MG, 1X/DAY

REACTIONS (1)
  - International normalised ratio fluctuation [Recovered/Resolved]

NARRATIVE: CASE EVENT DATE: 201403
